FAERS Safety Report 4586139-9 (Version None)
Quarter: 2005Q1

REPORT INFORMATION
  Report Type: 
  Country: None (occurrence: None)
  Receive Date: 20050125
  Receipt Date: 20041018
  Transmission Date: 20050727
  Serious: No
  Sender: FDA-Public Use
  Company Number: USA041081415

PATIENT
  Age: 79 Year
  Sex: Female
  Weight: 50 kg

DRUGS (3)
  1. FORTEO [Suspect]
     Indication: BONE DISORDER
     Dates: start: 20041012
  2. TUMS (CALCIUM CARBONATE) [Concomitant]
  3. FOSAMAX [Concomitant]

REACTIONS (4)
  - APHONIA [None]
  - COUGH [None]
  - HEADACHE [None]
  - INSOMNIA [None]
